FAERS Safety Report 25221855 (Version 1)
Quarter: 2025Q2

REPORT INFORMATION
  Report Type: Spontaneous
  Country: US (occurrence: US)
  Receive Date: 20250421
  Receipt Date: 20250421
  Transmission Date: 20250717
  Serious: Yes (Death, Hospitalization)
  Sender: JOHNSON AND JOHNSON
  Company Number: US-JNJFOC-20250418032

PATIENT
  Age: 61 Year
  Sex: Male

DRUGS (1)
  1. CARVYKTI [Suspect]
     Active Substance: CILTACABTAGENE AUTOLEUCEL
     Indication: Product used for unknown indication
     Route: 065
     Dates: start: 20240813, end: 20240813

REACTIONS (6)
  - Neurotoxicity [Fatal]
  - Ascending flaccid paralysis [Fatal]
  - Muscular weakness [Unknown]
  - Immune effector cell-associated neurotoxicity syndrome [Unknown]
  - Fall [Unknown]
  - Radiculopathy [Unknown]

NARRATIVE: CASE EVENT DATE: 20240901
